FAERS Safety Report 8430683-0 (Version None)
Quarter: 2012Q2

REPORT INFORMATION
  Report Type: 
  Country: None (occurrence: None)
  Receive Date: 20120323
  Receipt Date: 20110714
  Transmission Date: 20120825
  Serious: Yes (Hospitalization, Other)
  Sender: FDA-Public Use
  Company Number: 163-21880-11042899

PATIENT
  Age: 87 Year
  Sex: Female
  Weight: 45.81 kg

DRUGS (6)
  1. REVLIMID [Suspect]
     Indication: MULTIPLE MYELOMA
     Dosage: 25 MG, 1 IN 1 D, PO
     Route: 048
     Dates: start: 20081101
  2. DEXAMETHASONE [Concomitant]
  3. NEXIUM [Concomitant]
  4. VESICARE [Concomitant]
  5. ALLPURINOL (ALLOPURINOL) [Concomitant]
  6. SOTALOL HCL [Concomitant]

REACTIONS (2)
  - PNEUMONIA [None]
  - RENAL FAILURE [None]
